FAERS Safety Report 8870433 (Version 2)
Quarter: 2012Q4

REPORT INFORMATION
  Report Type: 
  Country: US (occurrence: US)
  Receive Date: 20121029
  Receipt Date: 20121221
  Transmission Date: 20130627
  Serious: Yes (Hospitalization, Other)
  Sender: FDA-Public Use
  Company Number: US-AMGEN-USASP2012067397

PATIENT
  Age: 73 Year
  Sex: Male
  Weight: 95 kg

DRUGS (13)
  1. NPLATE [Suspect]
     Indication: IDIOPATHIC THROMBOCYTOPENIC PURPURA
     Dosage: 1 mug/kg (100 mug), qwk
     Route: 058
     Dates: start: 20100308
  2. POTASSIUM [Concomitant]
     Route: 048
  3. LASIX                              /00032601/ [Concomitant]
     Route: 048
  4. ALTACE [Concomitant]
     Dosage: 10 UNK, UNK
     Route: 048
  5. OCUVITE                            /01053801/ [Concomitant]
     Route: 048
  6. CRESTOR [Concomitant]
     Route: 048
  7. ALLOPURINOL [Concomitant]
  8. PRILOSEC                           /00661201/ [Concomitant]
  9. COUMADIN                           /00014802/ [Concomitant]
  10. VITAMINS                           /00067501/ [Concomitant]
  11. FLAVONID [Concomitant]
  12. RITUXAN [Concomitant]
     Dosage: UNK
     Dates: start: 2010
  13. PREDNISONE [Concomitant]
     Dosage: 10 UNK, UNK
     Dates: end: 2012

REACTIONS (5)
  - Platelet count decreased [Unknown]
  - Atrial fibrillation [Unknown]
  - Heart rate increased [Unknown]
  - Stomatitis [Unknown]
  - Fatigue [Unknown]
